FAERS Safety Report 15742298 (Version 1)
Quarter: 2018Q4

REPORT INFORMATION
  Report Type: Spontaneous
  Country: US (occurrence: US)
  Receive Date: 20181219
  Receipt Date: 20181219
  Transmission Date: 20190205
  Serious: No
  Sender: FDA-Public Use
  Company Number: US-TARO-2018TAR00631

PATIENT
  Age: 72 Year
  Sex: Female
  Weight: 64.85 kg

DRUGS (5)
  1. FISH OIL (PRESCRIPTION) [Concomitant]
  2. CALCIUM [Concomitant]
     Active Substance: CALCIUM
  3. ROPINIROLE. [Concomitant]
     Active Substance: ROPINIROLE
     Dosage: UNK, AS NEEDED
  4. HYDROCORTISONE CREAM USP 2.5% [Suspect]
     Active Substance: HYDROCORTISONE
     Indication: RASH
     Dosage: A DAB TO COVER AN AREA OF DRY SKIN ON LEFT SHIN, 2X/DAY
     Route: 061
     Dates: start: 20180824, end: 20180827
  5. SYNTHROID [Concomitant]
     Active Substance: LEVOTHYROXINE SODIUM

REACTIONS (2)
  - Pruritus [Recovering/Resolving]
  - Blister [Recovering/Resolving]

NARRATIVE: CASE EVENT DATE: 20180826
